FAERS Safety Report 9788200 (Version 1)
Quarter: 2013Q4

REPORT INFORMATION
  Report Type: Spontaneous
  Country: US (occurrence: None)
  Receive Date: 20131227
  Receipt Date: 20131227
  Transmission Date: 20140711
  Serious: Yes (Hospitalization)
  Sender: FDA-Public Use
  Company Number: None

PATIENT
  Age: 54 Year
  Sex: Male
  Weight: 81.3 kg

DRUGS (11)
  1. PIPERACILLIN-TAZOBACTAM [Suspect]
     Indication: CELLULITIS
     Dosage: RECENT
     Route: 042
  2. VANCOMYCIN [Suspect]
     Indication: CELLULITIS
     Dosage: RECENT WITH RECENT INCREASE
     Route: 042
  3. LANTUS [Suspect]
     Indication: TYPE 1 DIABETES MELLITUS
     Dosage: QPM
     Route: 058
  4. SPIRIVA [Concomitant]
  5. COMBIVENT [Concomitant]
  6. ELAVIL [Concomitant]
  7. NEURONTIN [Concomitant]
  8. ZOLOFT [Concomitant]
  9. CHLORTHALIDONE [Concomitant]
  10. LISINOPRIL [Concomitant]
  11. PEPCID [Concomitant]

REACTIONS (9)
  - Mental status changes [None]
  - Renal failure acute [None]
  - Tubulointerstitial nephritis [None]
  - Rash [None]
  - Eosinophilia [None]
  - Toxicity to various agents [None]
  - Drug hypersensitivity [None]
  - Nephropathy toxic [None]
  - Blood glucose decreased [None]
